FAERS Safety Report 12395452 (Version 1)
Quarter: 2016Q2

REPORT INFORMATION
  Report Type: Spontaneous
  Country: JP (occurrence: JP)
  Receive Date: 20160523
  Receipt Date: 20160523
  Transmission Date: 20160815
  Serious: Yes (Life-Threatening, Other)
  Sender: FDA-Public Use
  Company Number: JP-ABBVIE-16P-087-1632937-00

PATIENT
  Age: 19 Year
  Sex: Male

DRUGS (4)
  1. BROTIZOLAM [Suspect]
     Active Substance: BROTIZOLAM
     Indication: SUICIDE ATTEMPT
     Route: 048
     Dates: start: 20130428, end: 20130428
  2. DEPAKINE [Suspect]
     Active Substance: VALPROATE SODIUM
     Indication: SUICIDE ATTEMPT
     Route: 048
     Dates: start: 20130428, end: 20130428
  3. CIBENOL [Suspect]
     Active Substance: CIFENLINE
     Indication: SUICIDE ATTEMPT
     Route: 048
     Dates: start: 20130428, end: 20130428
  4. IBUPROFEN. [Suspect]
     Active Substance: IBUPROFEN
     Indication: SUICIDE ATTEMPT
     Route: 048
     Dates: start: 20130428, end: 20130428

REACTIONS (5)
  - Suicide attempt [Unknown]
  - Hypoglycaemia [Unknown]
  - Electrocardiogram QRS complex prolonged [Unknown]
  - Altered state of consciousness [Unknown]
  - Intentional overdose [Unknown]

NARRATIVE: CASE EVENT DATE: 20130428
